FAERS Safety Report 17793764 (Version 1)
Quarter: 2020Q2

REPORT INFORMATION
  Report Type: Spontaneous
  Country: US (occurrence: US)
  Receive Date: 20200515
  Receipt Date: 20200515
  Transmission Date: 20200714
  Serious: Yes (Other)
  Sender: FDA-Public Use
  Company Number: US-UPSHER-SMITH LABORATORIES, LLC-2020USL00264

PATIENT
  Sex: Male

DRUGS (1)
  1. AMIODARONE HYDROCHLORIDE. [Suspect]
     Active Substance: AMIODARONE HYDROCHLORIDE
     Indication: ATRIAL FIBRILLATION
     Dosage: UNK
     Route: 048
     Dates: start: 200912

REACTIONS (11)
  - Off label use [Recovered/Resolved]
  - Vitreous floaters [Unknown]
  - Coordination abnormal [Unknown]
  - Heart rate abnormal [Unknown]
  - Eye pain [Unknown]
  - Chest pain [Unknown]
  - Anxiety [Unknown]
  - Depression [Unknown]
  - Unevaluable event [Unknown]
  - Blindness [Unknown]
  - Fatigue [Unknown]

NARRATIVE: CASE EVENT DATE: 200912
